FAERS Safety Report 24582119 (Version 5)
Quarter: 2024Q4

REPORT INFORMATION
  Report Type: Report from Study
  Country: US (occurrence: US)
  Receive Date: 20241105
  Receipt Date: 20241211
  Transmission Date: 20250115
  Serious: Yes (Hospitalization, Other)
  Sender: ABBVIE
  Company Number: US-ABBVIE-5984993

PATIENT
  Age: 67 Year
  Sex: Female
  Weight: 78.925 kg

DRUGS (12)
  1. UBRELVY [Suspect]
     Active Substance: UBROGEPANT
     Indication: Migraine
     Dosage: AS NEEDED
     Route: 048
     Dates: start: 2024
  2. ATORVASTATIN [Concomitant]
     Active Substance: ATORVASTATIN
     Indication: Blood cholesterol increased
     Route: 065
     Dates: start: 2021
  3. LOSARTAN POTASSIUM [Concomitant]
     Active Substance: LOSARTAN POTASSIUM
     Indication: Hypertension
     Route: 065
     Dates: start: 2021
  4. EZETIMIBE [Concomitant]
     Active Substance: EZETIMIBE
     Indication: Blood cholesterol increased
     Route: 065
     Dates: start: 2023
  5. AMLODIPINE [Concomitant]
     Active Substance: AMLODIPINE BESYLATE
     Indication: Hypertension
     Dates: start: 2022
  6. AMLODIPINE [Concomitant]
     Active Substance: AMLODIPINE BESYLATE
     Indication: Hypertension
     Dates: start: 2022
  7. AMLODIPINE [Concomitant]
     Active Substance: AMLODIPINE BESYLATE
     Indication: Hypertension
     Dates: start: 2022
  8. LENALIDOMIDE [Concomitant]
     Active Substance: LENALIDOMIDE
     Indication: C3 glomerulopathy
     Route: 065
     Dates: start: 20240805
  9. SUMATRIPTAN [Concomitant]
     Active Substance: SUMATRIPTAN
     Indication: Migraine
     Route: 065
     Dates: start: 2005
  10. BUTALBITAL, ACETAMINOPHEN, AND CAFFEINE [Concomitant]
     Active Substance: ACETAMINOPHEN\BUTALBITAL\CAFFEINE
     Indication: Migraine
     Route: 065
     Dates: start: 2005
  11. QULIPTA [Suspect]
     Active Substance: ATOGEPANT
     Indication: Migraine
     Route: 048
     Dates: start: 2024
  12. QULIPTA [Suspect]
     Active Substance: ATOGEPANT
     Indication: Migraine
     Route: 048
     Dates: start: 2024, end: 2024

REACTIONS (16)
  - Pulmonary thrombosis [Unknown]
  - Asthenia [Recovering/Resolving]
  - Neoplasm malignant [Unknown]
  - Abdominal pain [Not Recovered/Not Resolved]
  - Chest pain [Recovered/Resolved]
  - Cough [Unknown]
  - Dysphonia [Not Recovered/Not Resolved]
  - Feeling abnormal [Recovering/Resolving]
  - Physical disability [Not Recovered/Not Resolved]
  - Sneezing [Unknown]
  - Painful respiration [Unknown]
  - Pain [Unknown]
  - Migraine [Not Recovered/Not Resolved]
  - Unevaluable event [Not Recovered/Not Resolved]
  - C3 glomerulopathy [Recovering/Resolving]
  - Fatigue [Unknown]

NARRATIVE: CASE EVENT DATE: 20240101
